FAERS Safety Report 9229921 (Version 1)
Quarter: 2013Q2

REPORT INFORMATION
  Report Type: Spontaneous
  Country: US (occurrence: None)
  Receive Date: 20130412
  Receipt Date: 20130412
  Transmission Date: 20140414
  Serious: Yes (Hospitalization)
  Sender: FDA-Public Use
  Company Number: None

PATIENT
  Age: 50 Year
  Sex: Male
  Weight: 80.28 kg

DRUGS (1)
  1. CISPLATIN [Suspect]

REACTIONS (2)
  - Radiation skin injury [None]
  - Cellulitis [None]
